FAERS Safety Report 19585313 (Version 2)
Quarter: 2021Q3

REPORT INFORMATION
  Report Type: Other
  Country: AT (occurrence: AT)
  Receive Date: 20210721
  Receipt Date: 20210805
  Transmission Date: 20211014
  Serious: Yes (Other)
  Sender: FDA-Public Use
  Company Number: AT-ROCHE-2869643

PATIENT
  Age: 51 Year
  Sex: Male

DRUGS (6)
  1. HEPARIN [Concomitant]
     Active Substance: HEPARIN SODIUM
     Indication: PRODUCT USED FOR UNKNOWN INDICATION
     Route: 040
  2. HEPARIN [Concomitant]
     Active Substance: HEPARIN SODIUM
     Route: 042
  3. ACTILYSE [Suspect]
     Active Substance: ALTEPLASE
     Route: 042
  4. ACTILYSE [Suspect]
     Active Substance: ALTEPLASE
     Indication: MYOCARDIAL INFARCTION
     Route: 040
  5. ACTILYSE [Suspect]
     Active Substance: ALTEPLASE
     Route: 042
  6. ACETYLSALICYLIC ACID [Concomitant]
     Active Substance: ASPIRIN
     Indication: PRODUCT USED FOR UNKNOWN INDICATION
     Route: 048

REACTIONS (5)
  - Optic nerve compression [Unknown]
  - Conjunctival haemorrhage [Recovered/Resolved]
  - Visual field defect [Unknown]
  - Eye haematoma [Recovered/Resolved]
  - Exophthalmos [Recovered/Resolved]
